FAERS Safety Report 22537571 (Version 1)
Quarter: 2023Q2

REPORT INFORMATION
  Report Type: Spontaneous
  Country: CH (occurrence: CH)
  Receive Date: 20230608
  Receipt Date: 20230608
  Transmission Date: 20230721
  Serious: Yes (Hospitalization, Other)
  Sender: FDA-Public Use
  Company Number: None

PATIENT
  Age: 78 Year
  Sex: Female
  Weight: 51.6 kg

DRUGS (41)
  1. METHOTREXATE SODIUM [Suspect]
     Active Substance: METHOTREXATE SODIUM
     Indication: B-cell lymphoma recurrent
     Dosage: 2370 MG, 1X/DAY
     Route: 042
     Dates: start: 20230421, end: 20230421
  2. METHOTREXATE SODIUM [Suspect]
     Active Substance: METHOTREXATE SODIUM
     Dosage: 15 MG, 1X/DAY
     Route: 039
     Dates: start: 20230419, end: 20230419
  3. DOXORUBICIN HYDROCHLORIDE [Suspect]
     Active Substance: DOXORUBICIN HYDROCHLORIDE
     Indication: B-cell lymphoma recurrent
     Dosage: 87 MG, 1X/DAY
     Route: 042
     Dates: start: 20221101, end: 20221101
  4. DOXORUBICIN HYDROCHLORIDE [Suspect]
     Active Substance: DOXORUBICIN HYDROCHLORIDE
     Dosage: 34 MG (LIPOSOMAL), 1X/DAY
     Route: 042
     Dates: start: 20230105, end: 20230105
  5. DOXORUBICIN HYDROCHLORIDE [Suspect]
     Active Substance: DOXORUBICIN HYDROCHLORIDE
     Dosage: 33 MG (LIPOSOMAL), 1X/DAY
     Route: 042
     Dates: start: 20230304, end: 20230304
  6. VINCRISTINE SULFATE [Suspect]
     Active Substance: VINCRISTINE SULFATE
     Indication: B-cell lymphoma recurrent
     Dosage: 2 MG, 1X/DAY
     Route: 042
     Dates: start: 20221101, end: 20221101
  7. CYCLOPHOSPHAMIDE [Suspect]
     Active Substance: CYCLOPHOSPHAMIDE
     Indication: B-cell lymphoma recurrent
     Dosage: 1300 MG, 1X/DAY
     Route: 042
     Dates: start: 20221101, end: 20221101
  8. CYCLOPHOSPHAMIDE [Suspect]
     Active Substance: CYCLOPHOSPHAMIDE
     Dosage: 700 MG
     Route: 042
     Dates: start: 20221212, end: 20221212
  9. CYCLOPHOSPHAMIDE [Suspect]
     Active Substance: CYCLOPHOSPHAMIDE
     Dosage: 650 MG
     Route: 042
     Dates: start: 20230126, end: 20230126
  10. CYCLOPHOSPHAMIDE [Suspect]
     Active Substance: CYCLOPHOSPHAMIDE
     Dosage: 650 MG
     Route: 042
     Dates: start: 20230216, end: 20230216
  11. PREDNISONE [Suspect]
     Active Substance: PREDNISONE
     Indication: B-cell lymphoma recurrent
     Dosage: 69.5 MG, 1X/DAY
     Route: 048
     Dates: start: 20221101, end: 20221105
  12. RITUXIMAB [Suspect]
     Active Substance: RITUXIMAB
     Indication: B-cell lymphoma recurrent
     Dosage: 600 MG, 1X/DAY
     Route: 042
     Dates: start: 20221101, end: 20221101
  13. RITUXIMAB [Suspect]
     Active Substance: RITUXIMAB
     Dosage: 600 MG, 1X/DAY
     Route: 042
     Dates: start: 20221128, end: 20221128
  14. RITUXIMAB [Suspect]
     Active Substance: RITUXIMAB
     Dosage: 600 MG, 1X/DAY
     Route: 042
     Dates: start: 20221212, end: 20221212
  15. RITUXIMAB [Suspect]
     Active Substance: RITUXIMAB
     Dosage: 600 MG, 1X/DAY
     Route: 042
     Dates: start: 20230126, end: 20230126
  16. RITUXIMAB [Suspect]
     Active Substance: RITUXIMAB
     Dosage: 600 MG, 1X/DAY
     Route: 042
     Dates: start: 20230216, end: 20230216
  17. RITUXIMAB [Suspect]
     Active Substance: RITUXIMAB
     Dosage: 593 MG, 1X/DAY
     Route: 042
     Dates: start: 20230421, end: 20230421
  18. CYTARABINE [Concomitant]
     Active Substance: CYTARABINE
     Indication: High-grade B-cell lymphoma
     Dosage: 40 MG, 1X/DAY
     Route: 037
     Dates: start: 20230419, end: 20230419
  19. METHYLPREDNISOLONE [Concomitant]
     Active Substance: METHYLPREDNISOLONE
     Indication: High-grade B-cell lymphoma
     Dosage: 40 MG, 1X/DAY
     Route: 037
     Dates: start: 20230419, end: 20230419
  20. LEUCOVORIN [Concomitant]
     Active Substance: LEUCOVORIN
     Dosage: 30 MG, 1X/DAY
     Route: 048
     Dates: start: 20230421, end: 20230421
  21. ASPIRIN [Concomitant]
     Active Substance: ASPIRIN
     Dosage: UNK
     Dates: end: 202211
  22. METOPROLOL SUCCINATE [Concomitant]
     Active Substance: METOPROLOL SUCCINATE
     Dosage: UNK
  23. ALLOPURINOL [Concomitant]
     Active Substance: ALLOPURINOL
     Dates: end: 202211
  24. PREDNISONE [Concomitant]
     Active Substance: PREDNISONE
     Dosage: UNK
     Dates: start: 20221021, end: 202211
  25. PANTOZOL [Concomitant]
     Active Substance: PANTOPRAZOLE SODIUM
     Dosage: UNK
     Dates: end: 20230418
  26. DAFALGAN [Concomitant]
     Active Substance: ACETAMINOPHEN
     Dosage: UNK
  27. REMERON [Concomitant]
     Active Substance: MIRTAZAPINE
     Dosage: UNK
     Dates: end: 20230418
  28. CRESEMBA [Concomitant]
     Active Substance: ISAVUCONAZONIUM SULFATE
     Dosage: UNK
     Dates: end: 20230418
  29. CRESEMBA [Concomitant]
     Active Substance: ISAVUCONAZONIUM SULFATE
     Dosage: UNK
     Dates: start: 20230423
  30. LISINOPRIL [Concomitant]
     Active Substance: LISINOPRIL
     Dosage: UNK
     Dates: end: 20230418
  31. LISINOPRIL [Concomitant]
     Active Substance: LISINOPRIL
     Dosage: UNK
     Dates: start: 20230421
  32. ELIQUIS [Concomitant]
     Active Substance: APIXABAN
     Dosage: UNK
     Dates: end: 20230418
  33. ELIQUIS [Concomitant]
     Active Substance: APIXABAN
     Dosage: UNK
     Dates: start: 20230420
  34. CALCIUM\CHOLECALCIFEROL [Concomitant]
     Active Substance: CALCIUM\CHOLECALCIFEROL
     Dosage: UNK
     Dates: end: 20230418
  35. BACTRIM [Concomitant]
     Active Substance: SULFAMETHOXAZOLE\TRIMETHOPRIM
     Dosage: UNK
     Dates: end: 20230419
  36. VALTREX [Concomitant]
     Active Substance: VALACYCLOVIR HYDROCHLORIDE
     Dosage: UNK
  37. DEXAMETHASONE [Concomitant]
     Active Substance: DEXAMETHASONE
     Dosage: UNK
     Dates: start: 20230419
  38. ATARAX [Concomitant]
     Active Substance: HYDROXYZINE HYDROCHLORIDE
     Dosage: UNK
     Dates: start: 20230427
  39. NYSTATIN [Concomitant]
     Active Substance: NYSTATIN
     Dosage: UNK
     Dates: start: 20230426
  40. ATOVAQUONE [Concomitant]
     Active Substance: ATOVAQUONE
     Dosage: UNK
     Dates: end: 20230418
  41. ATOVAQUONE [Concomitant]
     Active Substance: ATOVAQUONE
     Dosage: UNK
     Dates: start: 20230420

REACTIONS (6)
  - Gastrointestinal inflammation [Unknown]
  - Cardiogenic shock [Recovered/Resolved]
  - Septic shock [Recovered/Resolved]
  - Agranulocytosis [Recovered/Resolved]
  - Tumour lysis syndrome [Recovered/Resolved]
  - Stomatitis [Recovered/Resolved]

NARRATIVE: CASE EVENT DATE: 20221108
